FAERS Safety Report 8242560-9 (Version None)
Quarter: 2012Q1

REPORT INFORMATION
  Report Type: 
  Country: None (occurrence: None)
  Receive Date: 20120329
  Receipt Date: 20120326
  Transmission Date: 20120608
  Serious: Yes (Hospitalization)
  Sender: FDA-Public Use
  Company Number: PHEH2012US006142

PATIENT
  Sex: Male

DRUGS (5)
  1. ZITHROMAX [Concomitant]
  2. TOBI [Suspect]
     Indication: CYSTIC FIBROSIS
     Dosage: 300 MG, BID, EVERY 28 DAYS
  3. PULMOZYME [Concomitant]
  4. ENZYMES [Concomitant]
  5. ALBUTEROL [Concomitant]

REACTIONS (1)
  - UNDERWEIGHT [None]
